FAERS Safety Report 13088983 (Version 1)
Quarter: 2017Q1

REPORT INFORMATION
  Report Type: Spontaneous
  Country: US (occurrence: US)
  Receive Date: 20170105
  Receipt Date: 20170105
  Transmission Date: 20170428
  Serious: No
  Sender: FDA-Public Use
  Company Number: US-PERRIGO-15US013564

PATIENT
  Age: 84 Year
  Sex: Female
  Weight: 51.7 kg

DRUGS (1)
  1. GUAIFENESIN. [Suspect]
     Active Substance: GUAIFENESIN
     Indication: RESPIRATORY TRACT CONGESTION
     Dosage: 1/2 TABLET, BID
     Route: 048
     Dates: start: 20151225

REACTIONS (2)
  - Incorrect dose administered [Unknown]
  - Wrong technique in product usage process [Unknown]

NARRATIVE: CASE EVENT DATE: 20151225
